FAERS Safety Report 10003713 (Version 2)
Quarter: 2014Q2

REPORT INFORMATION
  Report Type: Spontaneous
  Country: US (occurrence: US)
  Receive Date: 20140312
  Receipt Date: 20140611
  Transmission Date: 20141212
  Serious: No
  Sender: FDA-Public Use
  Company Number: US-INCYTE CORPORATION-2014IN000100

PATIENT
  Sex: Female

DRUGS (10)
  1. JAKAFI [Suspect]
     Dosage: 5 MG, BID
     Route: 048
     Dates: start: 20130320
  2. JAKAFI [Suspect]
     Dosage: 5 MG, QD
     Route: 048
     Dates: end: 2014
  3. ATORVASTATIN [Concomitant]
  4. APEXICON [Concomitant]
  5. MENEST                             /00073001/ [Concomitant]
  6. VOLTAREN   GEL                        /00372301/ [Concomitant]
  7. CIPRODEX                           /00697202/ [Concomitant]
  8. ALEVE [Concomitant]
  9. ASPIRIN [Concomitant]
  10. SYNTHROID [Concomitant]

REACTIONS (2)
  - Rash [Unknown]
  - Dyspnoea [Unknown]
